FAERS Safety Report 12303874 (Version 2)
Quarter: 2016Q3

REPORT INFORMATION
  Report Type: Spontaneous
  Country: US (occurrence: US)
  Receive Date: 20160426
  Receipt Date: 20160920
  Transmission Date: 20161109
  Serious: Yes (Other)
  Sender: FDA-Public Use
  Company Number: US-JNJFOC-20160411216

PATIENT
  Sex: Male

DRUGS (4)
  1. RISPERDAL [Suspect]
     Active Substance: RISPERIDONE
     Indication: AUTISM
     Dosage: 0.5 - 1 MG
     Route: 048
     Dates: start: 2000, end: 2012
  2. RISPERDAL [Suspect]
     Active Substance: RISPERIDONE
     Indication: SCHIZOPHRENIA
     Dosage: 0.5 - 1 MG
     Route: 048
     Dates: start: 2000, end: 2012
  3. RISPERDAL [Suspect]
     Active Substance: RISPERIDONE
     Indication: IMPULSE-CONTROL DISORDER
     Dosage: 0.5 - 1 MG
     Route: 048
     Dates: start: 2000, end: 2012
  4. RISPERDAL [Suspect]
     Active Substance: RISPERIDONE
     Indication: AUTISM SPECTRUM DISORDER
     Dosage: 0.5 - 1 MG
     Route: 048
     Dates: start: 2000, end: 2012

REACTIONS (5)
  - Gynaecomastia [Unknown]
  - Tooth abscess [Unknown]
  - Abnormal weight gain [Unknown]
  - Gingivitis [Unknown]
  - Galactorrhoea [Unknown]
